FAERS Safety Report 9421357 (Version 1)
Quarter: 2013Q3

REPORT INFORMATION
  Report Type: Spontaneous
  Country: PY (occurrence: PY)
  Receive Date: 20130725
  Receipt Date: 20130725
  Transmission Date: 20140515
  Serious: Yes (Hospitalization, Disabling)
  Sender: FDA-Public Use
  Company Number: PY-B.I. PHARMACEUTICALS,INC./RIDGEFIELD-2013-RA-00214RA

PATIENT
  Age: 60 Year
  Sex: Female
  Weight: 70 kg

DRUGS (5)
  1. PRADAXA [Suspect]
     Dosage: 1 ANZ
     Route: 048
     Dates: start: 20130612, end: 20130612
  2. PRADAXA [Suspect]
     Dosage: 2 ANZ
     Route: 048
     Dates: start: 20130613, end: 20130614
  3. RANITIDINA [Concomitant]
     Route: 042
     Dates: start: 20130612, end: 20130613
  4. DICLOFENAC [Concomitant]
     Route: 042
     Dates: start: 20130612, end: 20130613
  5. ENALAPRIL [Concomitant]
     Dosage: 5 MG
     Route: 048
     Dates: start: 200807

REACTIONS (3)
  - Haemorrhage urinary tract [Recovered/Resolved]
  - Dysuria [Recovered/Resolved]
  - Back pain [Recovered/Resolved]
